FAERS Safety Report 16521379 (Version 1)
Quarter: 2019Q3

REPORT INFORMATION
  Report Type: Spontaneous
  Country: DE (occurrence: DE)
  Receive Date: 20190702
  Receipt Date: 20190702
  Transmission Date: 20191004
  Serious: Yes (Hospitalization)
  Sender: FDA-Public Use
  Company Number: PHHY2019DE148630

PATIENT
  Age: 50 Year
  Sex: Female
  Weight: 82 kg

DRUGS (1)
  1. LEVOFLOXACIN. [Suspect]
     Active Substance: LEVOFLOXACIN
     Indication: PRODUCT USED FOR UNKNOWN INDICATION
     Dosage: 1 DF, Q12H
     Route: 048
     Dates: start: 20190321, end: 20190324

REACTIONS (9)
  - Myalgia [Not Recovered/Not Resolved]
  - Adverse reaction [Not Recovered/Not Resolved]
  - Pain in extremity [Not Recovered/Not Resolved]
  - Burning sensation [Not Recovered/Not Resolved]
  - Bursitis [Not Recovered/Not Resolved]
  - Paraesthesia [Not Recovered/Not Resolved]
  - Weight increased [Not Recovered/Not Resolved]
  - Tendon pain [Not Recovered/Not Resolved]
  - Arthralgia [Not Recovered/Not Resolved]

NARRATIVE: CASE EVENT DATE: 201903
